FAERS Safety Report 17163024 (Version 1)
Quarter: 2019Q4

REPORT INFORMATION
  Report Type: Spontaneous
  Country: CA (occurrence: CA)
  Receive Date: 20191217
  Receipt Date: 20191217
  Transmission Date: 20200122
  Serious: Yes (Hospitalization)
  Sender: FDA-Public Use
  Company Number: CA-HORIZON-RAV-0373-2019

PATIENT
  Age: 4 Year
  Sex: Female

DRUGS (5)
  1. RANITIDINE. [Concomitant]
     Active Substance: RANITIDINE
  2. ARGININE [Concomitant]
     Active Substance: ARGININE
  3. FERRUM SOLUTION [Concomitant]
  4. RAVICTI [Suspect]
     Active Substance: GLYCEROL PHENYLBUTYRATE
     Indication: ARGINASE DEFICIENCY
     Dosage: 5.5 ML DAILY (DIVIDED AS: 1.5 ML, 1.5 ML, 1.5 ML, 1 ML)
     Dates: start: 20181025
  5. BACTRIM [Concomitant]
     Active Substance: SULFAMETHOXAZOLE\TRIMETHOPRIM
     Indication: URINARY TRACT INFECTION

REACTIONS (1)
  - Pneumonia [Not Recovered/Not Resolved]
